FAERS Safety Report 5016794-0 (Version None)
Quarter: 2006Q2

REPORT INFORMATION
  Report Type: 
  Country: None (occurrence: None)
  Receive Date: 20060602
  Receipt Date: 20060206
  Transmission Date: 20061013
  Serious: No
  Sender: FDA-Public Use
  Company Number: US-GLAXOSMITHKLINE-A0592519A

PATIENT
  Sex: Female

DRUGS (1)
  1. AUGMENTIN XR [Suspect]
     Indication: LOWER RESPIRATORY TRACT INFECTION
     Dosage: 1000MG TWICE PER DAY
     Route: 048

REACTIONS (1)
  - PRURITUS [None]
